FAERS Safety Report 7384156-7 (Version None)
Quarter: 2011Q1

REPORT INFORMATION
  Report Type: 
  Country: None (occurrence: None)
  Receive Date: 20110330
  Receipt Date: 20110323
  Transmission Date: 20110831
  Serious: Yes (Hospitalization)
  Sender: FDA-Public Use
  Company Number: B0703801A

PATIENT
  Sex: Male
  Weight: 65 kg

DRUGS (9)
  1. ZYLORIC [Concomitant]
     Dosage: 100MG PER DAY
     Route: 048
  2. ONON [Concomitant]
     Dosage: 450MG PER DAY
     Route: 048
  3. SERETIDE [Suspect]
     Indication: CHRONIC OBSTRUCTIVE PULMONARY DISEASE
     Dosage: 500MCG PER DAY
     Route: 055
     Dates: start: 20091216, end: 20100617
  4. CHINESE MEDICINE [Concomitant]
     Dosage: 9G PER DAY
     Route: 048
  5. NORVASC [Concomitant]
     Indication: HYPERTENSION
     Dosage: 5MG PER DAY
     Route: 048
  6. ARICEPT [Concomitant]
     Indication: DEMENTIA OF THE ALZHEIMER'S TYPE, UNCOMPLICATED
     Dosage: 5MG PER DAY
     Route: 048
  7. MUCODYNE [Concomitant]
     Dosage: 1000MG PER DAY
     Route: 048
  8. ARTIST [Concomitant]
     Dosage: 2.5MG PER DAY
     Route: 048
  9. OLMETEC [Concomitant]
     Dosage: 20MG PER DAY
     Route: 048

REACTIONS (1)
  - COMPRESSION FRACTURE [None]
